FAERS Safety Report 19398421 (Version 1)
Quarter: 2021Q2

REPORT INFORMATION
  Report Type: Spontaneous
  Country: US (occurrence: US)
  Receive Date: 20210609
  Receipt Date: 20210609
  Transmission Date: 20210717
  Serious: No
  Sender: FDA-Public Use
  Company Number: None

PATIENT
  Sex: Female

DRUGS (2)
  1. DIMETHYL FUMARATE 240MG MYLAN [Suspect]
     Active Substance: DIMETHYL FUMARATE
     Indication: DERMATITIS ATOPIC
     Route: 048
     Dates: start: 20201106
  2. DIMETHYL FUMARATE 240MG MYLAN [Suspect]
     Active Substance: DIMETHYL FUMARATE
     Indication: MULTIPLE SCLEROSIS
     Route: 048
     Dates: start: 20201106

REACTIONS (2)
  - Rash [None]
  - Pruritus [None]
